FAERS Safety Report 14569196 (Version 1)
Quarter: 2018Q1

REPORT INFORMATION
  Report Type: Spontaneous
  Country: US (occurrence: US)
  Receive Date: 20180223
  Receipt Date: 20180223
  Transmission Date: 20180509
  Serious: Yes (Death, Other)
  Sender: FDA-Public Use
  Company Number: None

PATIENT
  Age: 77 Year
  Sex: Female
  Weight: 85.5 kg

DRUGS (10)
  1. MUCINEX D [Concomitant]
     Active Substance: GUAIFENESIN\PSEUDOEPHEDRINE HYDROCHLORIDE
  2. CIPROFLOXACIN. [Concomitant]
     Active Substance: CIPROFLOXACIN
  3. RANITIDINE. [Concomitant]
     Active Substance: RANITIDINE
  4. CETIRIZINE [Concomitant]
     Active Substance: CETIRIZINE HYDROCHLORIDE
  5. LATANOPROST. [Concomitant]
     Active Substance: LATANOPROST
  6. PROMACTA [Suspect]
     Active Substance: ELTROMBOPAG OLAMINE
     Route: 048
     Dates: start: 20171113, end: 20180223
  7. COMBIGAN [Concomitant]
     Active Substance: BRIMONIDINE TARTRATE\TIMOLOL MALEATE
  8. ACYCLOVIR. [Concomitant]
     Active Substance: ACYCLOVIR
  9. ITRACONAZOLE. [Concomitant]
     Active Substance: ITRACONAZOLE
  10. TYLENOL [Concomitant]
     Active Substance: ACETAMINOPHEN

REACTIONS (1)
  - Disease progression [None]
